FAERS Safety Report 12651812 (Version 1)
Quarter: 2016Q3

REPORT INFORMATION
  Report Type: Spontaneous
  Country: US (occurrence: US)
  Receive Date: 20160815
  Receipt Date: 20160815
  Transmission Date: 20161109
  Serious: No
  Sender: FDA-Public Use
  Company Number: US-GALDERMA-US16001165

PATIENT
  Age: 24 Year
  Sex: Female

DRUGS (2)
  1. ADAPALENE GEL, 0.3% [Suspect]
     Active Substance: ADAPALENE
     Indication: ACNE
     Dosage: 0.3%
     Route: 061
     Dates: start: 2014, end: 2014
  2. BENZACLIN (BENZOYL PEROXIDE/CLINDAMYCIN) [Concomitant]
     Indication: ACNE
     Route: 061

REACTIONS (3)
  - Photosensitivity reaction [Recovered/Resolved]
  - Dry skin [Recovered/Resolved]
  - Acne [Recovered/Resolved]

NARRATIVE: CASE EVENT DATE: 2014
